FAERS Safety Report 6080220-3 (Version None)
Quarter: 2009Q1

REPORT INFORMATION
  Report Type: 
  Country: None (occurrence: None)
  Receive Date: 20090217
  Receipt Date: 20090210
  Transmission Date: 20090719
  Serious: Yes (Death)
  Sender: FDA-Public Use
  Company Number: US-BAYER-200812078GPV

PATIENT
  Age: 66 Year
  Sex: Female
  Weight: 59 kg

DRUGS (7)
  1. FLUDARA [Suspect]
     Indication: B-CELL SMALL LYMPHOCYTIC LYMPHOMA
     Route: 042
     Dates: start: 20070815, end: 20070819
  2. FLUDARA [Suspect]
     Route: 042
     Dates: start: 20070910, end: 20070914
  3. FLUDARA [Suspect]
     Route: 042
     Dates: start: 20071011, end: 20071015
  4. FLUDARA [Suspect]
     Route: 042
     Dates: start: 20071220, end: 20071224
  5. FLUDARA [Suspect]
     Route: 042
     Dates: start: 20071122, end: 20071126
  6. BISEPTOL [Concomitant]
     Indication: DRUG USE FOR UNKNOWN INDICATION
     Dates: start: 20070814, end: 20080112
  7. GEVIRAN [Concomitant]
     Indication: DRUG USE FOR UNKNOWN INDICATION
     Dates: start: 20070814, end: 20080112

REACTIONS (1)
  - PULMONARY OEDEMA [None]
